FAERS Safety Report 7901378-4 (Version None)
Quarter: 2011Q4

REPORT INFORMATION
  Report Type: 
  Country: None (occurrence: None)
  Receive Date: 20111108
  Receipt Date: 20111025
  Transmission Date: 20120403
  Serious: Yes (Hospitalization)
  Sender: FDA-Public Use
  Company Number: PHHO2011US12436

PATIENT
  Sex: Female
  Weight: 79.3 kg

DRUGS (20)
  1. IRBESARTAN [Suspect]
     Indication: HYPERTENSION
     Dosage: 75 MG, Q5W
     Dates: end: 20110801
  2. LOVASTATIN [Concomitant]
     Dosage: 40 MG, QD
     Route: 048
  3. CYCLOBENZAPRINE [Suspect]
     Indication: MUSCLE SPASMS
     Dosage: 20 MG, QHS
     Route: 048
     Dates: end: 20110801
  4. LANTUS [Suspect]
     Indication: TYPE 2 DIABETES MELLITUS
     Dosage: 45 IU, QD
     Route: 058
     Dates: end: 20110801
  5. DILTIAZEM HCL [Suspect]
     Indication: HYPERTENSION
     Dosage: 180 MG, QD
     Route: 048
     Dates: end: 20110801
  6. NOVOLOG [Suspect]
     Indication: TYPE 2 DIABETES MELLITUS
     Dosage: 46 IU, BID
     Route: 058
     Dates: end: 20110801
  7. CENTRUM SILVER [Concomitant]
     Dosage: 1 DF (TAB), QD
     Route: 048
  8. COLACE [Concomitant]
     Dosage: 100 MG, QD
     Route: 048
  9. FLUTICASONE PROPIONATE [Concomitant]
     Dosage: 25 DF (5 UG / SPRAY), EACH NOSTRIL, QD
  10. CYCLOBENZAPRINE [Suspect]
     Dosage: 10 MG, QHS
     Route: 048
  11. AVAPRO [Concomitant]
     Dosage: 75 MG, QD
     Route: 048
  12. NIACIN [Concomitant]
     Dosage: 1000 MG, QD
  13. HYDROCHLOROTHIAZIDE [Suspect]
     Indication: HYPERTENSION
     Dosage: 25 MG, QD
     Route: 048
     Dates: end: 20110801
  14. BLINDED PLACEBO [Suspect]
     Indication: CARDIOVASCULAR DISORDER
     Dosage: CODE NOT BROKEN
     Route: 048
     Dates: start: 20090610, end: 20110722
  15. NAPROXEN [Concomitant]
     Dosage: 500 MG, BID
     Route: 048
  16. BLINDED ALISKIREN [Suspect]
     Indication: CARDIOVASCULAR DISORDER
     Dosage: CODE NOT BROKEN
     Route: 048
     Dates: start: 20090610, end: 20110722
  17. BLINDED NO TREATMENT RECEIVED [Suspect]
     Indication: CARDIOVASCULAR DISORDER
     Dosage: CODE NOT BROKEN
     Route: 048
     Dates: start: 20090610, end: 20110722
  18. GLUCOSAMINE W/CHONDROITIN [Concomitant]
     Route: 048
  19. LEVOTHYROXINE SODIUM [Concomitant]
     Dosage: 50 UG, QD
     Route: 048
  20. PRILOSEC [Concomitant]
     Dosage: 20 MG, QD
     Route: 048

REACTIONS (5)
  - DEHYDRATION [None]
  - ELECTROLYTE IMBALANCE [None]
  - SYNCOPE [None]
  - FIBULA FRACTURE [None]
  - CONCOMITANT DISEASE PROGRESSION [None]
